FAERS Safety Report 8204963-8 (Version None)
Quarter: 2012Q1

REPORT INFORMATION
  Report Type: 
  Country: None (occurrence: None)
  Receive Date: 20120309
  Receipt Date: 20120227
  Transmission Date: 20120608
  Serious: Yes (Hospitalization)
  Sender: FDA-Public Use
  Company Number: DSM-2012-00253

PATIENT
  Age: 65 Year
  Sex: Male

DRUGS (6)
  1. TAMSULOSIN HCL [Concomitant]
  2. APIDRA [Concomitant]
  3. SEVIKAR HCT (TABLET) [Suspect]
     Indication: HYPERTENSION
     Dosage: 40/5/25 MG (1 IN 1 D),ORAL
     Route: 048
     Dates: start: 20111005, end: 20111014
  4. METFORMIN (NO DSE PRODUCT) (METFORMIN) (METFORMIN) [Suspect]
     Indication: TYPE 2 DIABETES MELLITUS
     Dosage: 2550 MG (3 IN 1 D), ORAL
     Route: 048
     Dates: start: 20060101, end: 20111014
  5. LANTUS [Concomitant]
  6. AMLODIPINE BESYLATE AND OLMESARTAN MEDOXOMIL [Concomitant]

REACTIONS (8)
  - DISCOMFORT [None]
  - HAEMODIALYSIS [None]
  - DIARRHOEA [None]
  - LACTIC ACIDOSIS [None]
  - ASTHENIA [None]
  - RENAL FAILURE ACUTE [None]
  - BLOOD PRESSURE DIASTOLIC DECREASED [None]
  - METABOLIC ACIDOSIS [None]
